FAERS Safety Report 4599814-7 (Version None)
Quarter: 2005Q1

REPORT INFORMATION
  Report Type: 
  Country: None (occurrence: None)
  Receive Date: 20050303
  Receipt Date: 20050215
  Transmission Date: 20050727
  Serious: Yes (Hospitalization)
  Sender: FDA-Public Use
  Company Number: DSA_26018_2005

PATIENT
  Age: 68 Year
  Sex: Female

DRUGS (10)
  1. DILTIAZEM HCL [Suspect]
     Indication: HYPERTENSION
     Dosage: DF BID PO
     Route: 048
     Dates: start: 20041209, end: 20050107
  2. CLAMOXYL [Suspect]
     Dosage: 10 G Q DAY PO
     Route: 048
     Dates: start: 20041216, end: 20050107
  3. BACTRIM [Concomitant]
  4. CIPROFLOXACIN HCL [Concomitant]
  5. BURINEX [Concomitant]
  6. COVERSYL [Concomitant]
  7. DAFALGAN [Concomitant]
  8. GAVISCON [Concomitant]
  9. OMEPRAZOLE [Concomitant]
  10. KARDEGIC [Concomitant]

REACTIONS (4)
  - ALANINE AMINOTRANSFERASE INCREASED [None]
  - ASPARTATE AMINOTRANSFERASE INCREASED [None]
  - BLOOD ALKALINE PHOSPHATASE INCREASED [None]
  - GAMMA-GLUTAMYLTRANSFERASE INCREASED [None]
